FAERS Safety Report 5287643-0 (Version None)
Quarter: 2007Q1

REPORT INFORMATION
  Report Type: 
  Country: None (occurrence: None)
  Receive Date: 20070105
  Receipt Date: 20061003
  Transmission Date: 20070707
  Serious: Yes (Other)
  Sender: FDA-Public Use
  Company Number: US-JNJFOC-20061000795

PATIENT
  Age: 36 Year
  Sex: Female
  Weight: 68.0396 kg

DRUGS (3)
  1. ULTRAM SR [Suspect]
     Indication: NECK PAIN
     Dosage: SEE IMAGE
     Route: 048
     Dates: start: 20060819, end: 20060901
  2. ULTRAM SR [Suspect]
     Indication: NECK PAIN
     Dosage: SEE IMAGE
     Route: 048
     Dates: start: 20060901
  3. HYDROCODONE (HYDROCODONE) TABLET [Concomitant]

REACTIONS (3)
  - DRUG DEPENDENCE [None]
  - DRUG INEFFECTIVE [None]
  - PANIC ATTACK [None]
